FAERS Safety Report 23965351 (Version 2)
Quarter: 2024Q2

REPORT INFORMATION
  Report Type: Report from Study
  Country: TW (occurrence: TW)
  Receive Date: 20240612
  Receipt Date: 20240617
  Transmission Date: 20240716
  Serious: Yes (Hospitalization)
  Sender: FDA-Public Use
  Company Number: TW-JNJFOC-20240613677

PATIENT
  Age: 54 Year
  Sex: Female

DRUGS (1)
  1. RYBREVANT [Suspect]
     Active Substance: AMIVANTAMAB-VMJW
     Indication: Product used for unknown indication
     Route: 042
     Dates: start: 20240525

REACTIONS (5)
  - Taste disorder [Unknown]
  - Eating disorder [Unknown]
  - Asthenia [Unknown]
  - Electrolyte imbalance [Unknown]
  - White blood cell count decreased [Unknown]
